FAERS Safety Report 4563668-5 (Version None)
Quarter: 2005Q1

REPORT INFORMATION
  Report Type: 
  Country: None (occurrence: None)
  Receive Date: 20050121
  Receipt Date: 20050112
  Transmission Date: 20050727
  Serious: Yes (Hospitalization)
  Sender: FDA-Public Use
  Company Number: HQWYE604112JAN05

PATIENT
  Age: 45 Year
  Sex: Male

DRUGS (3)
  1. AVLOCARDYL                    (PROPRANOLOL HYDROCHLORIDE) [Suspect]
     Indication: HYPERTENSION
     Dosage: 10 MG 1X PER 1 DAY ORAL
     Route: 048
     Dates: end: 20041110
  2. STABILIUM                 (GARUM ARMONICUM,) [Suspect]
     Dosage: 600 MG 1X PER 1 DAY ORAL
     Route: 048
     Dates: start: 20041101, end: 20041110
  3. XYZALL                     (LEVOCETIRIZINE,) [Suspect]
     Dosage: 5 MG 1X PER 1 DAY ORAL
     Route: 048
     Dates: start: 20041110, end: 20041111

REACTIONS (1)
  - HEPATITIS [None]
